FAERS Safety Report 6926354-X (Version None)
Quarter: 2010Q3

REPORT INFORMATION
  Report Type: 
  Country: None (occurrence: None)
  Receive Date: 20100816
  Receipt Date: 20100713
  Transmission Date: 20110219
  Serious: No
  Sender: FDA-Public Use
  Company Number: US-BAYER-201027515NA

PATIENT
  Age: 30 Year
  Sex: Female

DRUGS (2)
  1. YAZ [Suspect]
     Indication: ORAL CONTRACEPTION
     Route: 048
     Dates: start: 20100501
  2. YAZ [Suspect]
     Route: 048
     Dates: start: 20090101, end: 20090101

REACTIONS (2)
  - NAUSEA [None]
  - PREGNANCY ON ORAL CONTRACEPTIVE [None]
